FAERS Safety Report 7081268-2 (Version None)
Quarter: 2010Q4

REPORT INFORMATION
  Report Type: 
  Country: None (occurrence: None)
  Receive Date: 20101103
  Receipt Date: 20101021
  Transmission Date: 20110411
  Serious: Yes (Death, Other)
  Sender: FDA-Public Use
  Company Number: US-WATSON-2010-05294

PATIENT
  Sex: Male
  Weight: 91.156 kg

DRUGS (2)
  1. FENTANYL-50 [Suspect]
     Indication: INTENTIONAL DRUG MISUSE
     Dosage: UNK
     Route: 065
  2. FENTANYL-50 [Suspect]
     Dosage: UNK
     Route: 065

REACTIONS (8)
  - DRUG DIVERSION [None]
  - LIVIDITY [None]
  - LUNG DISORDER [None]
  - MUSCLE RIGIDITY [None]
  - NARCOTIC INTOXICATION [None]
  - OVERDOSE [None]
  - PETECHIAE [None]
  - VISCERAL CONGESTION [None]
